FAERS Safety Report 14662462 (Version 3)
Quarter: 2018Q2

REPORT INFORMATION
  Report Type: Spontaneous
  Country: US (occurrence: US)
  Receive Date: 20180321
  Receipt Date: 20180525
  Transmission Date: 20180711
  Serious: Yes (Hospitalization, Other)
  Sender: FDA-Public Use
  Company Number: US-AMGEN-USASP2018035725

PATIENT
  Age: 47 Year
  Sex: Female
  Weight: 104.1 kg

DRUGS (15)
  1. OMNICEF [Concomitant]
     Active Substance: CEFDINIR
     Dosage: UNK
     Dates: start: 20180101, end: 20180114
  2. REPATHA [Suspect]
     Active Substance: EVOLOCUMAB
     Indication: BLOOD CHOLESTEROL INCREASED
     Dosage: UNK
     Route: 058
     Dates: start: 20171121, end: 20180314
  3. SELONSERTIB [Suspect]
     Active Substance: SELONSERTIB
     Indication: NON-ALCOHOLIC STEATOHEPATITIS
     Dosage: 18 MG, QD
     Route: 048
     Dates: start: 20170626
  4. ASPIRIN. [Concomitant]
     Active Substance: ASPIRIN
     Dosage: UNK
     Dates: start: 2014
  5. LISINOPRIL. [Concomitant]
     Active Substance: LISINOPRIL
     Dosage: UNK
     Dates: start: 200102
  6. SYNTHROID [Concomitant]
     Active Substance: LEVOTHYROXINE SODIUM
     Dosage: UNK
     Dates: start: 2006
  7. SELONSERTIB [Suspect]
     Active Substance: SELONSERTIB
     Dosage: 6 MG, QD
     Route: 048
     Dates: start: 20170626
  8. METOPROLOL TARTRATE AND HYDROCHLOROTHIAZIDE [Concomitant]
     Active Substance: HYDROCHLOROTHIAZIDE\METOPROLOL TARTRATE
     Dosage: UNK
     Dates: start: 2016
  9. NITROGLYCERIN. [Concomitant]
     Active Substance: NITROGLYCERIN
     Dosage: UNK
     Dates: start: 2014
  10. METFORMIN [Concomitant]
     Active Substance: METFORMIN HYDROCHLORIDE
     Dosage: UNK
     Dates: start: 2009
  11. SINGULAIR [Concomitant]
     Active Substance: MONTELUKAST SODIUM
     Dosage: UNK
     Dates: start: 20180101, end: 20180114
  12. CLARITIN [Concomitant]
     Active Substance: LORATADINE
     Dosage: UNK
     Dates: start: 20180101, end: 20180114
  13. FLUOXETINE [Concomitant]
     Active Substance: FLUOXETINE HYDROCHLORIDE
     Dosage: UNK
     Dates: start: 2012
  14. ISOSORBIDE MONONITRATE. [Concomitant]
     Active Substance: ISOSORBIDE MONONITRATE
     Dosage: UNK
     Dates: start: 201703
  15. JARDIANCE [Concomitant]
     Active Substance: EMPAGLIFLOZIN
     Dosage: UNK
     Dates: start: 20170720

REACTIONS (1)
  - Syncope [Recovered/Resolved]

NARRATIVE: CASE EVENT DATE: 20180213
